FAERS Safety Report 9364987 (Version 2)
Quarter: 2013Q3

REPORT INFORMATION
  Report Type: Spontaneous
  Country: JP (occurrence: JP)
  Receive Date: 20130624
  Receipt Date: 20130708
  Transmission Date: 20140515
  Serious: Yes (Life-Threatening, Other)
  Sender: FDA-Public Use
  Company Number: JP-ABBOTT-13P-087-1108296-00

PATIENT
  Age: 87 Year
  Sex: Male
  Weight: 52 kg

DRUGS (20)
  1. SEVOFRANE [Suspect]
     Indication: GENERAL ANAESTHESIA
     Dosage: 0.2-0.4%, 1.2%
     Route: 055
     Dates: start: 20090223, end: 20090223
  2. CATABON [Suspect]
     Indication: PRODUCT USED FOR UNKNOWN INDICATION
     Dosage: 2 MGXKG**-1XMIN**-1
     Dates: start: 20090223, end: 20090223
  3. ISOSORBIDE DINITRATE [Concomitant]
     Indication: ANGINA PECTORIS
     Route: 048
  4. DILTIAZEM HYDROCHLORIDE [Concomitant]
     Indication: ANGINA PECTORIS
     Route: 048
  5. SPIRONOLACTONE [Concomitant]
     Indication: RENAL IMPAIRMENT
     Route: 048
  6. REMIFENTANIL [Concomitant]
     Indication: ANAESTHESIA
     Dosage: MAINTAINED WITH 0.15-0.2 MCG/KG
  7. NORADRENALINE [Concomitant]
     Indication: BLOOD PRESSURE
     Dosage: 0.05-0.08 MCG/KG**-1X,OM
  8. NORADRENALINE [Concomitant]
     Indication: ANAESTHESIA
  9. OXYGEN [Concomitant]
     Indication: ANAESTHESIA
  10. ROCURONIUM BROMIDE [Concomitant]
     Indication: ANAESTHESIA
  11. ATROPINE SULFATE MONOHYDRATE [Concomitant]
     Indication: ANAESTHESIA
  12. ATROPINE SULFATE W/NEOSTIGMINE METILSULFATE [Concomitant]
     Indication: ANAESTHESIA
  13. NICORANDIL [Concomitant]
     Indication: ANAESTHESIA
  14. HEPARIN SODIUM [Concomitant]
     Indication: ANAESTHESIA
  15. AMMONIUM CHLORIDE [Concomitant]
     Indication: ANAESTHESIA
  16. FENTANYL CITRATE [Concomitant]
     Indication: ANAESTHESIA
  17. DEXTROSE IN LACTATED RINGER^S [Concomitant]
     Indication: ANAESTHESIA
  18. GLYCERIN W/FRUCTOSE [Concomitant]
     Indication: CEREBRAL OEDEMA MANAGEMENT
  19. SODIUM CHLORIDE + DEXTROSE [Concomitant]
     Indication: ANAESTHESIA
  20. HETASTARCH [Concomitant]
     Indication: ANAESTHESIA

REACTIONS (3)
  - Ventricular tachycardia [Recovered/Resolved]
  - Torsade de pointes [Recovered/Resolved]
  - Electrocardiogram QT prolonged [Recovered/Resolved]
